FAERS Safety Report 6914955-4 (Version None)
Quarter: 2010Q3

REPORT INFORMATION
  Report Type: 
  Country: None (occurrence: None)
  Receive Date: 20100809
  Receipt Date: 20100729
  Transmission Date: 20110219
  Serious: Yes (Life-Threatening, Hospitalization, Other)
  Sender: FDA-Public Use
  Company Number: US-BAXTER-2010BH019725

PATIENT
  Age: 73 Year
  Sex: Female
  Weight: 106 kg

DRUGS (2)
  1. DIPYRIDAMOLE [Suspect]
     Indication: COMPUTERISED TOMOGRAM
     Route: 042
     Dates: start: 20100630, end: 20100630
  2. DIPYRIDAMOLE [Suspect]
     Indication: CARDIAC STRESS TEST
     Route: 042
     Dates: start: 20100630, end: 20100630

REACTIONS (8)
  - BRADYCARDIA [None]
  - CARDIAC ARREST [None]
  - DYSPNOEA [None]
  - MENTAL STATUS CHANGES [None]
  - ORAL DISCHARGE [None]
  - PULMONARY OEDEMA [None]
  - PULSE ABSENT [None]
  - RESPIRATORY ARREST [None]
